FAERS Safety Report 8379857-8 (Version None)
Quarter: 2012Q2

REPORT INFORMATION
  Report Type: 
  Country: None (occurrence: None)
  Receive Date: 20120523
  Receipt Date: 20120522
  Transmission Date: 20120825
  Serious: Yes (Hospitalization)
  Sender: FDA-Public Use
  Company Number: US-PFIZER INC-2012123965

PATIENT
  Sex: Female
  Weight: 63.492 kg

DRUGS (7)
  1. METOPROLOL [Concomitant]
     Indication: HYPERTENSION
     Dosage: 25 MG, 2X/DAY
  2. NEURONTIN [Concomitant]
     Indication: NEUROPATHY PERIPHERAL
     Dosage: 300 MG, 3X/DAY
  3. XANAX [Concomitant]
     Indication: ANXIETY
     Dosage: 1 MG, 3X/DAY
  4. SIMVASTATIN [Concomitant]
     Dosage: 40 MG, DAILY
  5. VITAMIN B-12 [Concomitant]
     Dosage: 1000 IU, DAILY
  6. RAPAMUNE [Suspect]
     Indication: LIVER TRANSPLANT
     Dosage: 0.5 MG, DAILY
  7. ACETYLSALICYLIC ACID [Concomitant]
     Indication: CARDIAC DISORDER
     Dosage: 81 MG, DAILY

REACTIONS (4)
  - DIARRHOEA [None]
  - VOMITING [None]
  - NAUSEA [None]
  - CHRONIC OBSTRUCTIVE PULMONARY DISEASE [None]
